FAERS Safety Report 4976208-3 (Version None)
Quarter: 2006Q2

REPORT INFORMATION
  Report Type: 
  Country: None (occurrence: None)
  Receive Date: 20060419
  Receipt Date: 20060301
  Transmission Date: 20061013
  Serious: Yes (Other)
  Sender: FDA-Public Use
  Company Number: US-AVENTIS-200612065US

PATIENT
  Sex: Female

DRUGS (12)
  1. KETEK [Suspect]
     Indication: SINUSITIS
     Dosage: DOSE UNIT: DRAM
     Route: 048
     Dates: start: 20051121
  2. KETEK [Suspect]
     Route: 048
     Dates: start: 20051228
  3. KETEK [Suspect]
     Route: 048
     Dates: start: 20060104
  4. KETEK [Suspect]
     Route: 048
     Dates: start: 20060108
  5. ACTONEL [Concomitant]
     Dosage: DOSE: 35MG
     Route: 048
  6. ZYRTEC [Concomitant]
     Dosage: DOSE: UNKNOWN
  7. IMITREX [Concomitant]
     Dosage: DOSE: UNKNOWN
  8. TOPAMAX [Concomitant]
     Dosage: DOSE: UNKNOWN
     Dates: start: 20050605, end: 20051203
  9. VITAMINS [Concomitant]
     Dosage: DOSE: UNKNOWN
  10. OMEGA 3 [Concomitant]
     Dosage: DOSE: UNKNOWN
  11. CALCIUM GLUCONATE [Concomitant]
     Dosage: DOSE: UNKNOWN
  12. UNKNOWN DRUG [Concomitant]
     Dosage: DOSE: UNK

REACTIONS (3)
  - ALANINE AMINOTRANSFERASE INCREASED [None]
  - ASPARTATE AMINOTRANSFERASE INCREASED [None]
  - HEPATITIS [None]
